FAERS Safety Report 9995510 (Version 1)
Quarter: 2014Q1

REPORT INFORMATION
  Report Type: Spontaneous
  Country: US (occurrence: None)
  Receive Date: 20140307
  Receipt Date: 20140307
  Transmission Date: 20141002
  Serious: Yes (Life-Threatening, Hospitalization, Disabling)
  Sender: FDA-Public Use
  Company Number: None

PATIENT
  Age: 59 Year
  Sex: Female
  Weight: 90.72 kg

DRUGS (13)
  1. METHOTREXATE 2.5 [Suspect]
     Indication: RHEUMATOID ARTHRITIS
     Dosage: 2 PUFFS TWICE DAILY AT BEDTIME
     Route: 048
     Dates: start: 201201, end: 201307
  2. WALKER SEAT [Suspect]
  3. WHEELCHAIR [Suspect]
  4. OXYEN TANK [Suspect]
  5. PRO AIR HFA - 90 MCG ALBUTEROL PER ACTUATION MANUFACTURED IN IRELAND - MARKETD BY TEVA [Concomitant]
  6. CYCLOBENZAPRINE [Concomitant]
  7. ACETAMINOPHEN-OXYCODONE [Concomitant]
  8. SULFAMETHOXZOLE [Concomitant]
  9. PREDNISONE [Concomitant]
  10. SERTRANLINE [Concomitant]
  11. PROTONIX [Concomitant]
  12. FUROSEMIDE [Concomitant]
  13. ATORVASTA [Concomitant]

REACTIONS (4)
  - Hyperhidrosis [None]
  - Asthenia [None]
  - Lung disorder [None]
  - Dyspnoea [None]
